FAERS Safety Report 7494892-X (Version None)
Quarter: 2011Q2

REPORT INFORMATION
  Report Type: 
  Country: None (occurrence: None)
  Receive Date: 20110520
  Receipt Date: 20110513
  Transmission Date: 20111010
  Serious: Yes (Hospitalization)
  Sender: FDA-Public Use
  Company Number: US-ABBOTT-11P-163-0724376-00

PATIENT
  Sex: Male
  Weight: 94.432 kg

DRUGS (7)
  1. DEPAKOTE ER [Suspect]
     Dosage: CUT TABLET IN HALF
  2. DEPAKOTE ER [Suspect]
     Indication: BIPOLAR DISORDER
  3. DEPAKOTE [Suspect]
     Indication: BIPOLAR DISORDER
     Dates: start: 20020101
  4. RISPERDAL [Concomitant]
     Indication: PRODUCT USED FOR UNKNOWN INDICATION
  5. XANAX [Concomitant]
     Indication: PRODUCT USED FOR UNKNOWN INDICATION
  6. ATENOLOL [Concomitant]
     Indication: BLOOD PRESSURE
  7. CLOZARIL [Concomitant]
     Indication: PRODUCT USED FOR UNKNOWN INDICATION

REACTIONS (10)
  - VOMITING [None]
  - ALOPECIA [None]
  - FEAR [None]
  - URINARY TRACT INFECTION [None]
  - ABDOMINAL PAIN [None]
  - BREAST ENLARGEMENT [None]
  - WEIGHT INCREASED [None]
  - WRONG TECHNIQUE IN DRUG USAGE PROCESS [None]
  - ANXIETY [None]
  - PANIC REACTION [None]
